FAERS Safety Report 8054987-9 (Version None)
Quarter: 2011Q4

REPORT INFORMATION
  Report Type: 
  Country: None (occurrence: None)
  Receive Date: 20111216
  Receipt Date: 20110405
  Transmission Date: 20120403
  Serious: Yes (Hospitalization)
  Sender: FDA-Public Use
  Company Number: 274892USA

PATIENT
  Age: 24 Year
  Sex: Female
  Weight: 127.0072 kg

DRUGS (1)
  1. PARAGARD T 380A [Suspect]
     Indication: CONTRACEPTION
     Dosage: I.U.
     Route: 015
     Dates: start: 20110211, end: 20110220

REACTIONS (7)
  - VAGINAL DISCHARGE [None]
  - ENDOMETRITIS [None]
  - PYREXIA [None]
  - UTERINE DISORDER [None]
  - UTERINE ABSCESS [None]
  - WOUND INFECTION [None]
  - CELLULITIS [None]
